FAERS Safety Report 6722905-9 (Version None)
Quarter: 2010Q2

REPORT INFORMATION
  Report Type: 
  Country: None (occurrence: None)
  Receive Date: 20100511
  Receipt Date: 20100428
  Transmission Date: 20101027
  Serious: Yes (Other)
  Sender: FDA-Public Use
  Company Number: 201004IM001115

PATIENT

DRUGS (1)
  1. IMUKIN [Suspect]
     Indication: LUNG INFECTION
     Dosage: UG, THREE TIMES A WEEK,

REACTIONS (2)
  - ANAEMIA [None]
  - STEM CELL TRANSPLANT [None]
